FAERS Safety Report 25535393 (Version 1)
Quarter: 2025Q3

REPORT INFORMATION
  Report Type: Spontaneous
  Country: GB (occurrence: GB)
  Receive Date: 20250709
  Receipt Date: 20250709
  Transmission Date: 20251020
  Serious: Yes (Hospitalization, Other)
  Sender: ELI LILLY AND COMPANY
  Company Number: None

PATIENT
  Age: 51 Year
  Sex: Female

DRUGS (4)
  1. MOUNJARO [Suspect]
     Active Substance: TIRZEPATIDE
     Indication: Weight control
     Route: 065
     Dates: start: 20241108
  2. RAMIPRIL [Concomitant]
     Active Substance: RAMIPRIL
     Indication: Hypertension
  3. CITALOPRAM [Concomitant]
     Active Substance: CITALOPRAM
     Indication: Seasonal affective disorder
  4. CODEINE [Concomitant]
     Active Substance: CODEINE
     Indication: Irritable bowel syndrome

REACTIONS (6)
  - Illness [Unknown]
  - Loss of consciousness [Recovering/Resolving]
  - Blood pressure decreased [Unknown]
  - Pancreatitis acute [Recovered/Resolved]
  - Constipation [Unknown]
  - Abdominal pain upper [Unknown]

NARRATIVE: CASE EVENT DATE: 20250321
